FAERS Safety Report 9697417 (Version 1)
Quarter: 2013Q4

REPORT INFORMATION
  Report Type: Report from Study
  Country: KR (occurrence: KR)
  Receive Date: 20131120
  Receipt Date: 20131120
  Transmission Date: 20140711
  Serious: Yes (Hospitalization)
  Sender: FDA-Public Use
  Company Number: KR-BAYER-2013-138280

PATIENT
  Age: 74 Year
  Sex: Male

DRUGS (1)
  1. REGORAFENIB [Suspect]
     Indication: GASTRIC CANCER
     Dosage: DAILY DOSE 80 MG
     Dates: start: 20130606, end: 20131015

REACTIONS (3)
  - Cerebral infarction [Recovered/Resolved with Sequelae]
  - Cholecystitis acute [Recovered/Resolved]
  - Dysphagia [Not Recovered/Not Resolved]
